FAERS Safety Report 7352052-7 (Version None)
Quarter: 2011Q1

REPORT INFORMATION
  Report Type: 
  Country: None (occurrence: None)
  Receive Date: 20110315
  Receipt Date: 20110301
  Transmission Date: 20110831
  Serious: Yes (Death, Other)
  Sender: FDA-Public Use
  Company Number: JP-JNJFOC-20110207433

PATIENT
  Age: 71 Year
  Sex: Female

DRUGS (8)
  1. LYRICA [Suspect]
     Indication: PAIN
     Route: 048
  2. ANTIDIABETIC DRUG [Suspect]
     Indication: PRODUCT USED FOR UNKNOWN INDICATION
     Route: 065
  3. DUROTEP MT [Suspect]
     Indication: PAIN
     Route: 062
  4. RHEUMATREX [Suspect]
     Indication: RHEUMATOID ARTHRITIS
     Route: 065
  5. LOXONIN [Suspect]
     Indication: PAIN
     Route: 065
  6. DUROTEP MT [Suspect]
     Route: 062
  7. NOVAMIN [Suspect]
     Indication: PRODUCT USED FOR UNKNOWN INDICATION
     Route: 065
  8. DUROTEP MT [Suspect]
     Route: 062

REACTIONS (10)
  - DEATH [None]
  - CIRCULATORY COLLAPSE [None]
  - INTERSTITIAL LUNG DISEASE [None]
  - SOMNOLENCE [None]
  - TOXICITY TO VARIOUS AGENTS [None]
  - RESPIRATION ABNORMAL [None]
  - OXYGEN SATURATION DECREASED [None]
  - MENTAL IMPAIRMENT [None]
  - CONDITION AGGRAVATED [None]
  - NAUSEA [None]
